FAERS Safety Report 18957325 (Version 1)
Quarter: 2021Q1

REPORT INFORMATION
  Report Type: Spontaneous
  Country: NL (occurrence: NL)
  Receive Date: 20210302
  Receipt Date: 20210302
  Transmission Date: 20210420
  Serious: Yes (Other)
  Sender: FDA-Public Use
  Company Number: NVSC2021NL045706

PATIENT
  Sex: Female

DRUGS (1)
  1. KYMRIAH [Suspect]
     Active Substance: TISAGENLECLEUCEL
     Indication: NERVOUS SYSTEM DISORDER
     Dosage: UNK UNK, ONCE/SINGLE
     Route: 041

REACTIONS (3)
  - Drug ineffective for unapproved indication [Unknown]
  - Nervous system disorder [Unknown]
  - Malignant neoplasm progression [Unknown]
